FAERS Safety Report 6569174-0 (Version None)
Quarter: 2010Q1

REPORT INFORMATION
  Report Type: 
  Country: None (occurrence: None)
  Receive Date: 20100203
  Receipt Date: 20100129
  Transmission Date: 20100710
  Serious: Yes (Hospitalization)
  Sender: FDA-Public Use
  Company Number: JP-GENENTECH-293340

PATIENT
  Sex: Female

DRUGS (14)
  1. RITUXAN [Suspect]
     Indication: DIFFUSE LARGE B-CELL LYMPHOMA
     Dosage: 500 MG, UNK
     Route: 042
     Dates: start: 20080128, end: 20080201
  2. RITUXAN [Suspect]
     Dosage: UNK
     Dates: start: 20080218, end: 20080522
  3. RITUXAN [Suspect]
     Dosage: UNK
     Dates: start: 20080311
  4. RITUXAN [Suspect]
     Dosage: UNK
     Dates: start: 20080526, end: 20080616
  5. IRINOTECAN HYDROCHLORIDE [Suspect]
     Indication: DRUG USE FOR UNKNOWN INDICATION
     Dosage: 30 MG, QD
     Route: 042
     Dates: start: 20080429, end: 20080430
  6. DEXAMETHASONE [Suspect]
     Indication: DRUG USE FOR UNKNOWN INDICATION
     Dosage: 20 MG, QD
     Route: 042
     Dates: start: 20080429, end: 20080430
  7. PIRARUBICIN [Concomitant]
     Indication: DIFFUSE LARGE B-CELL LYMPHOMA
     Route: 065
  8. CYCLOPHOSPHAMIDE [Concomitant]
     Indication: DIFFUSE LARGE B-CELL LYMPHOMA
     Route: 065
  9. VINCRISTINE [Concomitant]
     Indication: DIFFUSE LARGE B-CELL LYMPHOMA
     Route: 065
  10. PREDNISOLONE [Concomitant]
     Indication: DIFFUSE LARGE B-CELL LYMPHOMA
     Route: 065
  11. LOCOL [Concomitant]
     Indication: HYPERLIPIDAEMIA
     Dosage: 20 MG, QD
     Route: 048
  12. BAKTAR [Concomitant]
     Indication: PROPHYLAXIS
     Dosage: 480 MG, QD
     Route: 048
     Dates: start: 20080112, end: 20080711
  13. DIFLUCAN [Concomitant]
     Indication: PROPHYLAXIS
     Dosage: 200 MG, QD
     Route: 048
     Dates: start: 20080112, end: 20080711
  14. RADIOTHERAPY [Concomitant]
     Indication: NEURALGIA
     Dosage: UNK
     Dates: start: 20080317, end: 20080414

REACTIONS (1)
  - INTESTINAL OBSTRUCTION [None]
